FAERS Safety Report 5305597-5 (Version None)
Quarter: 2007Q2

REPORT INFORMATION
  Report Type: 
  Country: None (occurrence: None)
  Receive Date: 20070424
  Receipt Date: 20070417
  Transmission Date: 20071010
  Serious: Yes (Hospitalization)
  Sender: FDA-Public Use
  Company Number: FR-AVENTIS-200711364FR

PATIENT
  Age: 65 Year
  Sex: Male
  Weight: 75 kg

DRUGS (13)
  1. FLAGYL [Suspect]
     Route: 048
     Dates: start: 20061218, end: 20070102
  2. CIFLOX                             /00697201/ [Suspect]
     Indication: SEPSIS
     Dates: end: 20061217
  3. CIFLOX                             /00697201/ [Suspect]
     Route: 048
     Dates: start: 20061218, end: 20070102
  4. ROCEPHIN [Suspect]
     Indication: SEPSIS
     Route: 042
     Dates: start: 20061218, end: 20061221
  5. ROCEPHIN [Suspect]
     Route: 042
     Dates: start: 20061224, end: 20070102
  6. COLCHIMAX (FRANCE) [Concomitant]
     Route: 048
     Dates: start: 20061227
  7. DIANTALVIC [Concomitant]
     Route: 048
     Dates: start: 20061227
  8. TENORMIN [Concomitant]
     Route: 048
  9. CORDARONE [Concomitant]
     Route: 048
  10. ALLOPURINOL [Concomitant]
     Route: 048
  11. ESIDRIX [Concomitant]
     Route: 048
  12. ATACAND [Concomitant]
     Route: 048
  13. AUGMENTIN                          /00756801/ [Concomitant]
     Route: 048
     Dates: end: 20061218

REACTIONS (1)
  - RENAL FAILURE ACUTE [None]
